FAERS Safety Report 4307173-X (Version None)
Quarter: 2004Q1

REPORT INFORMATION
  Report Type: 
  Country: None (occurrence: None)
  Receive Date: 20040225
  Receipt Date: 20040210
  Transmission Date: 20041129
  Serious: Yes (Hospitalization, Other)
  Sender: FDA-Public Use
  Company Number: 2003-DE-04543DE

PATIENT
  Age: 55 Year
  Sex: Male

DRUGS (3)
  1. MICARDIS [Suspect]
     Indication: DIABETIC NEPHROPATHY
     Dosage: (80 MG) PO
     Route: 048
     Dates: start: 20030911
  2. MICARDIS [Suspect]
     Indication: HYPERTENSION
     Dosage: (80 MG) PO
     Route: 048
     Dates: start: 20030911
  3. RIFUN (TA) [Concomitant]

REACTIONS (4)
  - PNEUMONIA [None]
  - PULMONARY OEDEMA [None]
  - RENAL FAILURE ACUTE [None]
  - RHABDOMYOLYSIS [None]
